FAERS Safety Report 18064889 (Version 1)
Quarter: 2020Q3

REPORT INFORMATION
  Report Type: Spontaneous
  Country: US (occurrence: US)
  Receive Date: 20200723
  Receipt Date: 20200723
  Transmission Date: 20201103
  Serious: No
  Sender: FDA-Public Use
  Company Number: None

PATIENT
  Sex: Male

DRUGS (1)
  1. TRAZODONE [Suspect]
     Active Substance: TRAZODONE HYDROCHLORIDE
     Indication: SLEEP DISORDER
     Route: 048
     Dates: start: 20191108, end: 20191109

REACTIONS (3)
  - Drug hypersensitivity [None]
  - Lip swelling [None]
  - Lip pain [None]

NARRATIVE: CASE EVENT DATE: 20191109
